FAERS Safety Report 7368605-6 (Version None)
Quarter: 2011Q1

REPORT INFORMATION
  Report Type: 
  Country: None (occurrence: None)
  Receive Date: 20110323
  Receipt Date: 20110310
  Transmission Date: 20110831
  Serious: Yes (Hospitalization, Other)
  Sender: FDA-Public Use
  Company Number: JP-BAYER-2011-001222

PATIENT
  Sex: Male
  Weight: 50 kg

DRUGS (18)
  1. SILODOSIN [Concomitant]
     Route: 048
  2. DIOVAN [Concomitant]
     Route: 048
  3. KATIV N [Concomitant]
     Route: 048
  4. ALLOPURINOL [Suspect]
     Indication: HYPERURICAEMIA
     Dosage: DAILY DOSE 100 MG
     Route: 048
     Dates: start: 20101210, end: 20101215
  5. MYSLEE [Concomitant]
     Route: 048
  6. BASEN [Concomitant]
     Route: 048
  7. NEXAVAR [Suspect]
     Indication: HEPATIC NEOPLASM MALIGNANT
     Dosage: 400 MG, BID
     Route: 048
     Dates: start: 20101202, end: 20101215
  8. URSO 250 [Concomitant]
     Route: 048
  9. ALDACTONE [Concomitant]
     Route: 048
  10. ADALAT CC [Concomitant]
     Route: 048
  11. PYDOXAL [Concomitant]
     Route: 065
  12. DOXAZOSIN MESYLATE [Concomitant]
     Route: 048
  13. KALLIKREIN [Concomitant]
     Route: 048
  14. LASIX [Concomitant]
     Route: 065
  15. FASTIC [Concomitant]
     Route: 048
  16. ARTIST [Concomitant]
     Route: 048
  17. NITRODERM [Concomitant]
     Route: 062
  18. FLUITRAN [Concomitant]
     Route: 048

REACTIONS (4)
  - PRURITUS [None]
  - ENANTHEMA [None]
  - STEVENS-JOHNSON SYNDROME [None]
  - RASH [None]
